FAERS Safety Report 9487016 (Version 2)
Quarter: 2013Q3

REPORT INFORMATION
  Report Type: Report from Study
  Country: FR (occurrence: FR)
  Receive Date: 20130829
  Receipt Date: 20130920
  Transmission Date: 20140515
  Serious: Yes (Other)
  Sender: FDA-Public Use
  Company Number: FR-VIIV HEALTHCARE LIMITED-B0918529A

PATIENT
  Age: 68 Year
  Sex: Male
  Weight: 69 kg

DRUGS (7)
  1. DOLUTEGRAVIR [Suspect]
     Indication: HIV INFECTION
     Dosage: 50MG TWICE PER DAY
     Route: 048
     Dates: start: 20121114
  2. CELSENTRI [Concomitant]
     Dosage: 50MG TWICE PER DAY
     Route: 048
     Dates: start: 20121114
  3. NORVIR [Concomitant]
     Dosage: 150MG TWICE PER DAY
     Route: 048
     Dates: start: 20121114
  4. PREZISTA [Concomitant]
     Dosage: 600MG TWICE PER DAY
     Route: 048
     Dates: start: 20121114
  5. GLUCOPHAGE [Concomitant]
     Dosage: 850MG TWICE PER DAY
     Route: 048
  6. CITALOPRAM [Concomitant]
     Route: 048
     Dates: start: 2005
  7. BACTRIM [Concomitant]
     Route: 048
     Dates: start: 2008

REACTIONS (2)
  - Viral mutation identified [Unknown]
  - Pathogen resistance [Unknown]
